FAERS Safety Report 7206322-3 (Version None)
Quarter: 2011Q1

REPORT INFORMATION
  Report Type: 
  Country: None (occurrence: None)
  Receive Date: 20110103
  Receipt Date: 20101228
  Transmission Date: 20110831
  Serious: Yes (Hospitalization)
  Sender: FDA-Public Use
  Company Number: PHHO2010CO06352

PATIENT
  Sex: Male
  Weight: 97.3 kg

DRUGS (9)
  1. NEORAL [Suspect]
     Dosage: 75 MG, QD
     Route: 048
  2. BACTRIM [Concomitant]
  3. LASIX [Suspect]
  4. PREDNISONE [Concomitant]
     Indication: RENAL TRANSPLANT
     Dosage: 5 MG DAILY
     Route: 048
     Dates: start: 20100206
  5. FUROSEMIDE [Suspect]
  6. NEORAL [Suspect]
     Indication: RENAL TRANSPLANT
     Dosage: 50 MG, BID
     Route: 048
     Dates: start: 20100206
  7. CERTICAN [Suspect]
     Indication: RENAL TRANSPLANT
     Dosage: 1.25 MG DAILY
     Route: 048
     Dates: start: 20100206
  8. COZAAR [Suspect]
  9. MACRODANTIN [Concomitant]

REACTIONS (10)
  - BACK PAIN [None]
  - BLOOD PARATHYROID HORMONE INCREASED [None]
  - OEDEMA [None]
  - RENAL DISORDER [None]
  - TRANSPLANT REJECTION [None]
  - TUBULOINTERSTITIAL NEPHRITIS [None]
  - RENAL FAILURE ACUTE [None]
  - BLOOD CREATININE INCREASED [None]
  - HYPERCALCAEMIA [None]
  - PARATHYROIDECTOMY [None]
